FAERS Safety Report 9059693 (Version 1)
Quarter: 2013Q1

REPORT INFORMATION
  Report Type: Spontaneous
  Country: US (occurrence: None)
  Receive Date: 20130206
  Receipt Date: 20130206
  Transmission Date: 20140127
  Serious: Yes (Hospitalization)
  Sender: FDA-Public Use
  Company Number: None

PATIENT
  Age: 67 Year
  Sex: Male
  Weight: 117.4 kg

DRUGS (1)
  1. ROSUVASTATIN [Suspect]
     Indication: ATYPICAL FEMUR FRACTURE
     Route: 048
     Dates: start: 20120831, end: 20121001

REACTIONS (2)
  - Myalgia [None]
  - Rhabdomyolysis [None]
